FAERS Safety Report 18342490 (Version 2)
Quarter: 2024Q1

REPORT INFORMATION
  Report Type: Report from Study
  Country: US (occurrence: US)
  Receive Date: 20201005
  Receipt Date: 20240229
  Transmission Date: 20240410
  Serious: Yes (Death, Other)
  Sender: FDA-Public Use
  Company Number: US-ACADIA PHARMACEUTICALS INC.-ACA-2020-PIM-002977

PATIENT
  Age: 86 Year
  Sex: Female

DRUGS (14)
  1. NUPLAZID [Suspect]
     Active Substance: PIMAVANSERIN TARTRATE
     Indication: Parkinson^s disease
     Dosage: 34 MILLIGRAM, QD
     Route: 048
     Dates: start: 20200708, end: 20200911
  2. NUPLAZID [Suspect]
     Active Substance: PIMAVANSERIN TARTRATE
     Dosage: 34 MILLIGRAM QD
     Route: 048
     Dates: start: 20221117, end: 20240219
  3. APOKYN [Concomitant]
     Active Substance: APOMORPHINE HYDROCHLORIDE
  4. SINEMET [Concomitant]
     Active Substance: CARBIDOPA\LEVODOPA
  5. NEUPRO [Concomitant]
     Active Substance: ROTIGOTINE
  6. CARVEDILOL [Concomitant]
     Active Substance: CARVEDILOL
  7. MEGESTROL [Concomitant]
     Active Substance: MEGESTROL
  8. NYSTOP [Concomitant]
     Active Substance: NYSTATIN
  9. LINZESS [Concomitant]
     Active Substance: LINACLOTIDE
  10. TIROSINT-SOL [Concomitant]
     Active Substance: LEVOTHYROXINE SODIUM
  11. LANSOPRAZOLE [Concomitant]
     Active Substance: LANSOPRAZOLE
  12. PHENOBARBITAL [Concomitant]
     Active Substance: PHENOBARBITAL
  13. FUROSEMIDE [Concomitant]
     Active Substance: FUROSEMIDE
  14. CINACALCET [Concomitant]
     Active Substance: CINACALCET

REACTIONS (7)
  - Death [Fatal]
  - Abdominal discomfort [Not Recovered/Not Resolved]
  - Fatigue [Not Recovered/Not Resolved]
  - Dyspnoea [Not Recovered/Not Resolved]
  - Somnolence [Not Recovered/Not Resolved]
  - Peripheral swelling [Not Recovered/Not Resolved]
  - Constipation [Not Recovered/Not Resolved]

NARRATIVE: CASE EVENT DATE: 20200901
